FAERS Safety Report 9706798 (Version 2)
Quarter: 2014Q1

REPORT INFORMATION
  Report Type: Report from Study
  Country: FI (occurrence: FI)
  Receive Date: 20131125
  Receipt Date: 20140121
  Transmission Date: 20141002
  Serious: Yes (Hospitalization, Other)
  Sender: FDA-Public Use
  Company Number: PHHY2013FI133698

PATIENT
  Age: 43 Year
  Sex: Female

DRUGS (13)
  1. LEPONEX [Suspect]
     Dosage: UNK
     Dates: start: 1990, end: 201212
  2. LEPONEX [Suspect]
     Dosage: 350 MG, DAILY
     Dates: start: 20130916, end: 20131114
  3. LEPONEX [Suspect]
     Dosage: 300 MG DAILY
     Dates: start: 20131114, end: 20131117
  4. LEPONEX [Suspect]
     Dosage: 375 MG DAILY
  5. LORAZEPAM [Concomitant]
     Dosage: 2 MG
  6. PEGORION [Concomitant]
     Dosage: UNK
  7. LITHIUM [Concomitant]
     Dosage: 900 MG PER DAY
  8. THYROXIN [Concomitant]
     Indication: HYPOTHYROIDISM
     Dosage: UNK
  9. ORGAMETRIL [Concomitant]
     Dosage: UNK
  10. PROPRAL [Concomitant]
     Dosage: UNK
  11. LEVOZIN [Concomitant]
     Dosage: SMALL DOSE
  12. LAXOBERON [Concomitant]
     Dosage: UNK
  13. IMOVANE [Concomitant]
     Dosage: UNK

REACTIONS (4)
  - Aggression [Recovering/Resolving]
  - Urinary tract infection [Recovered/Resolved]
  - Neutropenia [Recovered/Resolved]
  - White blood cell count decreased [Recovered/Resolved]
